FAERS Safety Report 5273742-6 (Version None)
Quarter: 2007Q1

REPORT INFORMATION
  Report Type: 
  Country: None (occurrence: None)
  Receive Date: 20061219
  Receipt Date: 20061006
  Transmission Date: 20070707
  Serious: Yes (Hospitalization)
  Sender: FDA-Public Use
  Company Number: US-JNJFOC-20060504003

PATIENT
  Age: 33 Year
  Sex: Female

DRUGS (3)
  1. ORTHO EVRA [Suspect]
     Indication: CONTRACEPTION
     Dosage: 1 DOSE(S), 3 IN 4 WEEK; TRANSDERMAL
     Route: 062
     Dates: start: 20050401, end: 20050519
  2. PREMARIN [Suspect]
     Indication: MENORRHAGIA
     Dosage: 1.25 MG, 2 IN 1 DAY;
  3. PROTONIX [Concomitant]

REACTIONS (3)
  - DEEP VEIN THROMBOSIS [None]
  - MENORRHAGIA [None]
  - PULMONARY EMBOLISM [None]
